FAERS Safety Report 8262471 (Version 2)
Quarter: 2012Q4

REPORT INFORMATION
  Report Type: Report from Study
  Country: GB (occurrence: UG)
  Receive Date: 20111124
  Receipt Date: 20121005
  Transmission Date: 20130627
  Serious: Yes (Death)
  Sender: FDA-Public Use
  Company Number: GB-GILEAD-2011-0046903

PATIENT

DRUGS (2)
  1. TENOFOVIR DISOPROXIL FUMARATE [Suspect]
     Indication: HIV INFECTION
     Dosage: UNK
  2. ZIDOVUDINE [Concomitant]
     Indication: HIV INFECTION

REACTIONS (2)
  - Death [Fatal]
  - Nephropathy [Fatal]
